FAERS Safety Report 5281543-8 (Version None)
Quarter: 2007Q1

REPORT INFORMATION
  Report Type: 
  Country: None (occurrence: None)
  Receive Date: 20070330
  Receipt Date: 20070321
  Transmission Date: 20070707
  Serious: Yes (Other)
  Sender: FDA-Public Use
  Company Number: PHEH2007US03352

PATIENT
  Age: 30 Year
  Sex: Female

DRUGS (1)
  1. LAMISIL [Suspect]
     Indication: ONYCHOMYCOSIS
     Dosage: 250 MG, QD
     Route: 048
     Dates: start: 20060830, end: 20061101

REACTIONS (6)
  - CEREBRAL HYPOPERFUSION [None]
  - CHEST DISCOMFORT [None]
  - HEADACHE [None]
  - LYME DISEASE [None]
  - MYALGIA [None]
  - NECK PAIN [None]
